FAERS Safety Report 8796918 (Version 2)
Quarter: 2013Q1

REPORT INFORMATION
  Report Type: Report from Study
  Country: JP (occurrence: JP)
  Receive Date: 20120919
  Receipt Date: 20130311
  Transmission Date: 20140127
  Serious: Yes (Other)
  Sender: FDA-Public Use
  Company Number: JP-VERTEX PHARMACEUTICAL INC.-AE-2012-012038

PATIENT
  Age: 63 Year
  Sex: Male

DRUGS (10)
  1. VX-950 (TELAPREVIR) [Suspect]
     Indication: CHRONIC HEPATITIS C
     Dosage: 2250 MG, QD
     Route: 048
     Dates: start: 20120613, end: 20120829
  2. RIBAVIRIN [Suspect]
     Indication: CHRONIC HEPATITIS C
     Dosage: 1000 MG, QD
     Route: 048
     Dates: start: 20120613, end: 20120627
  3. RIBAVIRIN [Suspect]
     Dosage: 800 MG, QD
     Route: 048
     Dates: start: 20120627, end: 20120705
  4. RIBAVIRIN [Suspect]
     Dosage: 600 MG, QD
     Route: 048
     Dates: start: 20120705, end: 20120711
  5. RIBAVIRIN [Suspect]
     Dosage: 400 MG, QD
     Route: 048
     Dates: start: 20120711
  6. PEGINTERFERON ALFA-2B [Concomitant]
     Dosage: 1.5 ?G/KG, QW
     Route: 058
     Dates: start: 20120613
  7. TAKEPRON [Concomitant]
     Dosage: 15 MG, QD
     Route: 048
     Dates: start: 20120613
  8. LOXONIN [Concomitant]
     Dosage: 60 MG, QD/PRN
     Route: 048
     Dates: start: 20120613
  9. LOXONIN [Concomitant]
     Dosage: 60 MG, QD
     Route: 048
     Dates: end: 20120801
  10. PREDONINE [Concomitant]
     Dosage: 15 MG, QD
     Route: 048
     Dates: start: 20120711

REACTIONS (4)
  - Blood creatinine increased [Recovered/Resolved]
  - Rash [Recovered/Resolved]
  - Haemoglobin decreased [Recovered/Resolved]
  - Blood uric acid increased [Recovered/Resolved]
